APPROVED DRUG PRODUCT: RANOLAZINE
Active Ingredient: RANOLAZINE
Strength: 1GM
Dosage Form/Route: TABLET, EXTENDED RELEASE;ORAL
Application: A210188 | Product #002 | TE Code: AB
Applicant: CADILA HEALTHCARE LTD
Approved: Aug 19, 2019 | RLD: No | RS: Yes | Type: RX